FAERS Safety Report 10731308 (Version 1)
Quarter: 2015Q1

REPORT INFORMATION
  Report Type: Spontaneous
  Country: FI (occurrence: FI)
  Receive Date: 20150122
  Receipt Date: 20150122
  Transmission Date: 20150721
  Serious: Yes (Hospitalization)
  Sender: FDA-Public Use
  Company Number: FI-ASTRAZENECA-2015SE04514

PATIENT
  Age: 24358 Day
  Sex: Male

DRUGS (17)
  1. NITRO [Concomitant]
     Active Substance: NITROGLYCERIN
     Dosage: 10 % SOLUTION
     Route: 060
  2. LOSATRIX [Concomitant]
     Active Substance: LOSARTAN POTASSIUM
     Route: 048
  3. ANDROCUR [Interacting]
     Active Substance: CYPROTERONE ACETATE
     Route: 048
  4. SELOKENZOC [Concomitant]
     Active Substance: METOPROLOL SUCCINATE
     Route: 046
     Dates: start: 20120314
  5. BYETTA [Concomitant]
     Active Substance: EXENATIDE
  6. ANDROCUR [Interacting]
     Active Substance: CYPROTERONE ACETATE
     Route: 048
     Dates: start: 20130425, end: 20141129
  7. LEVOLAC [Concomitant]
     Active Substance: LACTULOSE
     Route: 048
  8. LANSOPRAZOL [Concomitant]
     Active Substance: LANSOPRAZOLE
     Route: 048
     Dates: start: 20100205
  9. FIRMAGON [Concomitant]
     Active Substance: DEGARELIX ACETATE
     Route: 058
     Dates: start: 201303, end: 20131211
  10. DIFORMIN RETARD [Concomitant]
     Active Substance: METFORMIN HYDROCHLORIDE
     Route: 048
     Dates: start: 20070119
  11. AMLODIPIN [Concomitant]
     Active Substance: AMLODIPINE BESYLATE
     Route: 048
  12. CRESTOR [Suspect]
     Active Substance: ROSUVASTATIN CALCIUM
     Indication: BLOOD CHOLESTEROL
     Route: 048
     Dates: start: 20111219, end: 20141129
  13. NOVORAPID [Concomitant]
     Active Substance: INSULIN ASPART
     Route: 058
     Dates: start: 20090930
  14. PSYLLIUM [Concomitant]
     Active Substance: PLANTAGO SEED
     Route: 048
  15. LEVEMIR [Concomitant]
     Active Substance: INSULIN DETEMIR
     Route: 058
     Dates: start: 20101208
  16. PANOCOD [Concomitant]
     Active Substance: ACETAMINOPHEN\CODEINE PHOSPHATE
     Route: 048
  17. ASPIRIN CARDIO [Concomitant]
     Active Substance: ASPIRIN
     Route: 048

REACTIONS (4)
  - Myopathy [Not Recovered/Not Resolved]
  - Gait disturbance [Not Recovered/Not Resolved]
  - Rhabdomyolysis [Not Recovered/Not Resolved]
  - Drug interaction [Not Recovered/Not Resolved]

NARRATIVE: CASE EVENT DATE: 20141129
